FAERS Safety Report 9125827 (Version 2)
Quarter: 2013Q1

REPORT INFORMATION
  Report Type: Report from Study
  Country: US (occurrence: US)
  Receive Date: 20130227
  Receipt Date: 20130314
  Transmission Date: 20140127
  Serious: Yes (Other)
  Sender: FDA-Public Use
  Company Number: US-ABBOTT-13P-163-1052227-00

PATIENT
  Sex: Female
  Weight: 60.84 kg

DRUGS (5)
  1. HUMIRA [Suspect]
     Indication: PSORIATIC ARTHROPATHY
     Route: 058
     Dates: end: 201203
  2. HUMIRA [Suspect]
     Route: 058
     Dates: start: 201208
  3. GABAPENTIN [Concomitant]
     Indication: HYPOAESTHESIA
  4. GABAPENTIN [Concomitant]
     Indication: ROAD TRAFFIC ACCIDENT
  5. MECLOFENAMATE [Concomitant]
     Indication: ARTHRITIS

REACTIONS (5)
  - Spinal osteoarthritis [Not Recovered/Not Resolved]
  - Peroneal nerve palsy [Recovered/Resolved]
  - Back pain [Unknown]
  - Fall [Recovered/Resolved]
  - Bursitis [Recovered/Resolved]
